FAERS Safety Report 13136015 (Version 2)
Quarter: 2017Q1

REPORT INFORMATION
  Report Type: Report from Study
  Country: None (occurrence: US)
  Receive Date: 20170120
  Receipt Date: 20170131
  Transmission Date: 20170428
  Serious: Yes (Hospitalization)
  Sender: FDA-Public Use
  Company Number: US-ABBVIE-17P-163-1846199-00

PATIENT
  Age: 64 Year
  Sex: Female

DRUGS (3)
  1. IBRUTINIB (IBRUTINIB) [Concomitant]
     Indication: CHRONIC LYMPHOCYTIC LEUKAEMIA
     Dosage: LAST DOSE OF PROTOCOL TREATMENT WAS CYCLE 3 DAY 22 (C3D22) ON 10/JAN/2017
     Route: 048
     Dates: start: 20161122
  2. VENETOCLAX [Suspect]
     Active Substance: VENETOCLAX
     Indication: CHRONIC LYMPHOCYTIC LEUKAEMIA
     Dosage: LAST DOSE OF PROTOCOL TREATMENT WAS CYCLE 3 DAY 22 (C3D22) ON 10/JAN/2017
     Route: 048
     Dates: start: 20161220
  3. OBINUTUZUMAB (OBINUTUZUMAB) [Concomitant]
     Indication: CHRONIC LYMPHOCYTIC LEUKAEMIA
     Dosage: LAST DOSE OF PROTOCOL TREATMENT WAS CYCLE 3 DAY 22 (C3D22) ON 10/JAN/2017
     Route: 042
     Dates: start: 20161025

REACTIONS (1)
  - Chest pain [Not Recovered/Not Resolved]

NARRATIVE: CASE EVENT DATE: 20170110
